FAERS Safety Report 11232226 (Version 1)
Quarter: 2015Q2

REPORT INFORMATION
  Report Type: Spontaneous
  Country: None (occurrence: None)
  Receive Date: 20150618
  Receipt Date: 20150618
  Transmission Date: 20150821
  Serious: Yes (Disabling, Other)
  Sender: FDA-Public Use
  Company Number: 003-282

PATIENT
  Sex: Female

DRUGS (1)
  1. UNKNOWN ANTIVENIN (50633-110-12) [Suspect]
     Active Substance: CROTALIDAE POLYVALENT IMMUNE FAB (OVINE)
     Indication: SNAKE BITE

REACTIONS (2)
  - Gait disturbance [None]
  - Pain [None]
